FAERS Safety Report 11011053 (Version 2)
Quarter: 2015Q2

REPORT INFORMATION
  Report Type: Spontaneous
  Country: CZ (occurrence: CZ)
  Receive Date: 20150410
  Receipt Date: 20150417
  Transmission Date: 20150821
  Serious: Yes (Death)
  Sender: FDA-Public Use
  Company Number: CZ-ABBVIE-15P-217-1373179-00

PATIENT
  Sex: Male

DRUGS (1)
  1. HUMIRA [Suspect]
     Active Substance: ADALIMUMAB
     Indication: PEMPHIGUS
     Route: 065

REACTIONS (2)
  - Infection [Fatal]
  - Off label use [Unknown]
